FAERS Safety Report 7986672-3 (Version None)
Quarter: 2011Q4

REPORT INFORMATION
  Report Type: 
  Country: None (occurrence: None)
  Receive Date: 20111216
  Receipt Date: 20110805
  Transmission Date: 20120403
  Serious: No
  Sender: FDA-Public Use
  Company Number: US-BRISTOL-MYERS SQUIBB COMPANY-15951098

PATIENT
  Age: 5 Decade
  Sex: Female

DRUGS (3)
  1. ABILIFY [Suspect]
     Dosage: DOSE DECREASED TO 1MG THERAPY DURATION:3 TO 4 DAYS INTERRUPTED AND RESTARTED
  2. TRAZODONE HCL [Suspect]
  3. ZOLOFT [Suspect]

REACTIONS (1)
  - MYALGIA [None]
